FAERS Safety Report 7306417-X (Version None)
Quarter: 2011Q1

REPORT INFORMATION
  Report Type: 
  Country: None (occurrence: None)
  Receive Date: 20110222
  Receipt Date: 20110215
  Transmission Date: 20110831
  Serious: Yes (Hospitalization, Other)
  Sender: FDA-Public Use
  Company Number: US-PFIZER INC-2010109268

PATIENT
  Sex: Female
  Weight: 113 kg

DRUGS (12)
  1. DILANTIN [Suspect]
     Indication: EPILEPSY
     Dosage: 300 MG, 1X/DAY
     Route: 048
  2. LEXAPRO [Concomitant]
     Indication: DEPRESSION
     Dosage: 20 MG, 1X/DAY
     Route: 048
  3. MULTI-VITAMINS [Concomitant]
     Dosage: UNK
  4. SYNTHROID [Concomitant]
     Indication: THYROID DISORDER
     Dosage: 100 UG, 1X/DAY
     Route: 048
  5. ALDACTONE [Concomitant]
     Indication: HYPERTENSION
     Dosage: 25 MG, 1X/DAY
     Route: 048
  6. CALCIUM [Concomitant]
     Dosage: UNK
  7. ARICEPT [Concomitant]
     Indication: DEMENTIA
     Dosage: 10 MG, 1X/DAY
     Route: 048
  8. RISPERDAL [Concomitant]
     Indication: DEPRESSION
     Dosage: 0.25 MG, 2X/DAY
     Route: 048
  9. PRILOSEC [Concomitant]
     Indication: DYSPEPSIA
     Dosage: 20 MG, 1X/DAY
     Route: 048
  10. LIDODERM [Concomitant]
     Indication: PAIN
     Dosage: 5 %, UNK
  11. LORTAB [Concomitant]
     Indication: PAIN
     Dosage: 7.5/500
     Route: 048
  12. VITAMIN D [Concomitant]
     Dosage: 600 MG, 2X/DAY

REACTIONS (3)
  - CONVULSION [None]
  - ANTICONVULSANT DRUG LEVEL INCREASED [None]
  - TREMOR [None]
